FAERS Safety Report 24838190 (Version 2)
Quarter: 2025Q1

REPORT INFORMATION
  Report Type: Spontaneous
  Country: MX (occurrence: MX)
  Receive Date: 20250113
  Receipt Date: 20250210
  Transmission Date: 20250408
  Serious: No
  Sender: PFIZER
  Company Number: MX-PFIZER INC-PV202500003874

PATIENT
  Age: 16 Year
  Sex: Male
  Weight: 58.2 kg

DRUGS (1)
  1. GENOTROPIN [Suspect]
     Active Substance: SOMATROPIN
     Indication: Short stature
     Dosage: 3.3 MG, 1X/DAY
     Route: 058
     Dates: start: 20220412

REACTIONS (2)
  - Device defective [Unknown]
  - Product reconstitution quality issue [Unknown]

NARRATIVE: CASE EVENT DATE: 20250108
